FAERS Safety Report 24152609 (Version 1)
Quarter: 2024Q3

REPORT INFORMATION
  Report Type: Report from Study
  Country: US (occurrence: US)
  Receive Date: 20240730
  Receipt Date: 20240730
  Transmission Date: 20241016
  Serious: Yes (Hospitalization, Disabling)
  Sender: ABBVIE
  Company Number: US-ABBVIE-5846082

PATIENT
  Sex: Male

DRUGS (3)
  1. VENCLEXTA [Suspect]
     Active Substance: VENETOCLAX
     Indication: Chronic lymphocytic leukaemia
     Dosage: TAKE 2 TABLET(S) BY MOUTH (20MG) DAILY AS DIRECTED
     Route: 048
  2. VENCLEXTA [Suspect]
     Active Substance: VENETOCLAX
     Indication: Chronic lymphocytic leukaemia
     Dosage: TAKE FOUR TABS BY MOUTH DAILY WEEK 5: 400MG DAILY FOR 7 DAYS TO COMPLETE RAMP-UP, FOLLOWED BY 400MG
     Route: 048
  3. VENCLEXTA [Suspect]
     Active Substance: VENETOCLAX
     Indication: Chronic lymphocytic leukaemia
     Dosage: TAKE FOUR TABS BY MOUTH DAILY WEEK 5: 400MG DAILY FOR 7 DAYS TO COMPLETE? RAMP-UP, FOLLOWED BY 40...
     Route: 048

REACTIONS (4)
  - Disability [Unknown]
  - Visual impairment [Unknown]
  - Gait inability [Unknown]
  - Hospitalisation [Unknown]
